FAERS Safety Report 4958558-X (Version None)
Quarter: 2006Q1

REPORT INFORMATION
  Report Type: 
  Country: None (occurrence: None)
  Receive Date: 20060127
  Receipt Date: 20060127
  Transmission Date: 20060701
  Serious: Yes (Other)
  Sender: FDA-Public Use
  Company Number: 05-05-0852

PATIENT
  Age: 27 Year
  Sex: Male
  Weight: 61 kg

DRUGS (4)
  1. CLOZAPINE [Suspect]
     Indication: SCHIZOPHRENIA
     Dosage: 400MG QD, ORAL
     Route: 048
     Dates: start: 20000201, end: 20050527
  2. DEPAKOTE [Concomitant]
  3. ATIVAN [Concomitant]
  4. SCOPOLAMINE (HYOSCINE) [Concomitant]

REACTIONS (1)
  - GRANULOCYTOPENIA [None]
